FAERS Safety Report 20162179 (Version 1)
Quarter: 2021Q4

REPORT INFORMATION
  Report Type: Spontaneous
  Country: US (occurrence: US)
  Receive Date: 20211208
  Receipt Date: 20211208
  Transmission Date: 20220304
  Serious: Yes (Other)
  Sender: FDA-Public Use
  Company Number: US-PFIZER INC-2020318016

PATIENT
  Age: 70 Year
  Sex: Female

DRUGS (9)
  1. XELJANZ [Suspect]
     Active Substance: TOFACITINIB CITRATE
     Indication: Pustular psoriasis
     Dosage: 11 MG, DAILY
     Route: 048
     Dates: start: 202001
  2. XELJANZ [Suspect]
     Active Substance: TOFACITINIB CITRATE
     Dosage: 5 MG, 2X/DAY
     Route: 048
     Dates: start: 202111
  3. FLOVENT [Concomitant]
     Active Substance: FLUTICASONE PROPIONATE
     Dosage: UNK
  4. PRAVASTATIN [Concomitant]
     Active Substance: PRAVASTATIN
     Dosage: UNK
  5. SULFASALAZINE [Concomitant]
     Active Substance: SULFASALAZINE
     Dosage: UNK
  6. STRIVERDI RESPIMAT [Concomitant]
     Active Substance: OLODATEROL HYDROCHLORIDE
     Dosage: UNK
  7. FORTEO [Concomitant]
     Active Substance: TERIPARATIDE
     Dosage: UNK
  8. DICLOFENAC [Concomitant]
     Active Substance: DICLOFENAC
     Dosage: UNK
  9. AMLODIPINE [Concomitant]
     Active Substance: AMLODIPINE BESYLATE
     Dosage: UNK

REACTIONS (2)
  - Pulmonary embolism [Unknown]
  - Off label use [Unknown]

NARRATIVE: CASE EVENT DATE: 20211101
